FAERS Safety Report 11828835 (Version 2)
Quarter: 2016Q1

REPORT INFORMATION
  Report Type: Spontaneous
  Country: JP (occurrence: JP)
  Receive Date: 20151211
  Receipt Date: 20160108
  Transmission Date: 20160525
  Serious: Yes (Life-Threatening, Other)
  Sender: FDA-Public Use
  Company Number: JP-PFIZER INC-2015427747

PATIENT
  Age: 56 Year
  Sex: Female
  Weight: 35.5 kg

DRUGS (3)
  1. MEROPEN /01250501/ [Concomitant]
     Active Substance: MEROPENEM
     Indication: PNEUMONIA
     Dosage: 1000 MG, 3X/DAY
     Route: 041
     Dates: start: 20151130, end: 20151213
  2. TEICOPLANIN [Concomitant]
     Active Substance: TEICOPLANIN
     Indication: PNEUMONIA
     Dosage: 300 - 600 MG, 1X/DAY
     Route: 041
     Dates: start: 20151130, end: 20151213
  3. ZITHROMAC [Suspect]
     Active Substance: AZITHROMYCIN DIHYDRATE
     Indication: PNEUMONIA
     Dosage: 500 MG, 1X/DAY
     Route: 041
     Dates: start: 20151130, end: 20151202

REACTIONS (2)
  - Hyperthermia [Recovered/Resolved]
  - Blood pressure decreased [Recovered/Resolved]

NARRATIVE: CASE EVENT DATE: 20151130
